FAERS Safety Report 13762079 (Version 4)
Quarter: 2018Q1

REPORT INFORMATION
  Report Type: Spontaneous
  Country: JP (occurrence: JP)
  Receive Date: 20170718
  Receipt Date: 20180102
  Transmission Date: 20180508
  Serious: Yes (Other)
  Sender: FDA-Public Use
  Company Number: JP-CONCORDIA PHARMACEUTICALS INC.-E2B_00008262

PATIENT
  Age: 54 Year
  Sex: Female
  Weight: 56 kg

DRUGS (4)
  1. PREDNISOLONE. [Suspect]
     Active Substance: PREDNISOLONE
     Indication: EYELID OEDEMA
     Dosage: ABOUT 7 TIMES A MONTH; AS REQUIRED
  2. PREDNISOLONE. [Suspect]
     Active Substance: PREDNISOLONE
  3. PREDNISOLONE. [Suspect]
     Active Substance: PREDNISOLONE
  4. PREDNISOLONE. [Suspect]
     Active Substance: PREDNISOLONE
     Dosage: TAKEN 7 TIMES A MONTH ON AVERAGE

REACTIONS (2)
  - Symptom masked [Recovered/Resolved]
  - Diabetes mellitus [Recovered/Resolved]
